FAERS Safety Report 19730971 (Version 1)
Quarter: 2021Q3

REPORT INFORMATION
  Report Type: Spontaneous
  Country: US (occurrence: US)
  Receive Date: 20210820
  Receipt Date: 20210820
  Transmission Date: 20211014
  Serious: No
  Sender: FDA-Public Use
  Company Number: US-MYLANLABS-2021M1042185

PATIENT
  Sex: Female
  Weight: 68 kg

DRUGS (4)
  1. XULANE [Suspect]
     Active Substance: ETHINYL ESTRADIOL\NORELGESTROMIN
     Indication: CONTRACEPTION
     Dosage: UNK UNK, QD, CHANGE PATCH EVERY WEEK.
     Route: 062
  2. XULANE [Suspect]
     Active Substance: ETHINYL ESTRADIOL\NORELGESTROMIN
     Indication: MENSTRUATION DELAYED
  3. SPIRONOLACTONE. [Concomitant]
     Active Substance: SPIRONOLACTONE
     Indication: ACNE
     Dosage: 50 MILLIGRAM, QD
  4. VALTREX S [Concomitant]
     Indication: HERPES VIRUS INFECTION
     Dosage: 500 MILLIGRAM, QW

REACTIONS (3)
  - Off label use [Not Recovered/Not Resolved]
  - Application site rash [Unknown]
  - Product adhesion issue [Not Recovered/Not Resolved]
